FAERS Safety Report 10280270 (Version 2)
Quarter: 2014Q3

REPORT INFORMATION
  Report Type: Spontaneous
  Country: US (occurrence: US)
  Receive Date: 20140707
  Receipt Date: 20140820
  Transmission Date: 20150326
  Serious: No
  Sender: FDA-Public Use
  Company Number: US-009507513-1407USA001605

PATIENT
  Age: 50 Year
  Sex: Male

DRUGS (8)
  1. METHYLPREDNISOLONE SODIUM SUCCINATE. [Suspect]
     Active Substance: METHYLPREDNISOLONE SODIUM SUCCINATE
     Indication: DRUG REACTION WITH EOSINOPHILIA AND SYSTEMIC SYMPTOMS
     Dosage: DAILY DOSE: 0.6 MG/KG
     Route: 042
  2. ABACAVIR [Concomitant]
     Active Substance: ABACAVIR
     Indication: HIV INFECTION
  3. LAMIVUDINE. [Concomitant]
     Active Substance: LAMIVUDINE
     Indication: HIV INFECTION
     Dosage: UNK
  4. PEGINTRON [Concomitant]
     Active Substance: PEGINTERFERON ALFA-2B
     Indication: HEPATITIS C
  5. REBETOL [Concomitant]
     Active Substance: RIBAVIRIN
     Indication: HEPATITIS C
     Route: 048
  6. METHYLPREDNISOLONE SODIUM SUCCINATE. [Suspect]
     Active Substance: METHYLPREDNISOLONE SODIUM SUCCINATE
     Dosage: DAILY DOSE: 1.5 MG/KG
     Route: 042
  7. TELAPREVIR [Concomitant]
     Active Substance: TELAPREVIR
     Indication: HEPATITIS C
  8. ISENTRESS [Concomitant]
     Active Substance: RALTEGRAVIR POTASSIUM
     Indication: HIV INFECTION
     Route: 048

REACTIONS (1)
  - No therapeutic response [Unknown]
